APPROVED DRUG PRODUCT: DEXTROSE 2.5% IN PLASTIC CONTAINER
Active Ingredient: DEXTROSE
Strength: 2.5GM/100ML
Dosage Form/Route: INJECTABLE;INJECTION
Application: N018358 | Product #001
Applicant: B BRAUN MEDICAL INC
Approved: Approved Prior to Jan 1, 1982 | RLD: No | RS: No | Type: DISCN